FAERS Safety Report 8785346 (Version 2)
Quarter: 2012Q4

REPORT INFORMATION
  Report Type: 
  Country: US (occurrence: US)
  Receive Date: 20120914
  Receipt Date: 20121108
  Transmission Date: 20130627
  Serious: Yes (Hospitalization, Other)
  Sender: FDA-Public Use
  Company Number: US-PFIZER INC-2012224646

PATIENT
  Age: 66 Year
  Sex: Male
  Weight: 113 kg

DRUGS (13)
  1. TIKOSYN [Suspect]
     Indication: ATRIAL FIBRILLATION
     Dosage: 500 ug, 2x/day
     Route: 048
     Dates: start: 20120312, end: 20120316
  2. ALPRAZOLAM [Concomitant]
     Indication: ANXIETY
     Dosage: 1 mg, ? BID
  3. ALPRAZOLAM [Concomitant]
     Dosage: 1 mg, ? BID
  4. COMBIVENT [Concomitant]
     Indication: CHRONIC OBSTRUCTIVE PULMONARY DISEASE
     Dosage: 2 puffs 6 x 1 day
  5. COMBIVENT [Concomitant]
     Dosage: 2/puffs 6 x 1 day
  6. OMEPRAZOLE [Concomitant]
     Indication: BARRETT^S ESOPHAGUS
     Dosage: 20 mg, 2x/day
  7. SIMVASTATIN [Concomitant]
     Indication: HYPERLIPIDEMIA
     Dosage: 20 mg, 1x/day
  8. SIMVASTATIN [Concomitant]
     Dosage: 20 mg, 1x/day
  9. METHIMAZOLE [Concomitant]
     Indication: HYPERTHYROIDISM
     Dosage: 10 mg, 1x/day
  10. METHIMAZOLE [Concomitant]
     Dosage: 10 mg, QD
  11. WARFARIN [Concomitant]
     Indication: ATRIAL FIBRILLATION
     Dosage: UNK
  12. ATENOLOL [Concomitant]
     Dosage: 50 mg, 2x/day
  13. VERAPAMIL [Concomitant]
     Dosage: 240 mg, 2x/day

REACTIONS (2)
  - Arrhythmia [Unknown]
  - Vision blurred [Recovered/Resolved]
